FAERS Safety Report 7610272-8 (Version None)
Quarter: 2011Q3

REPORT INFORMATION
  Report Type: 
  Country: None (occurrence: None)
  Receive Date: 20110713
  Receipt Date: 20110713
  Transmission Date: 20111222
  Serious: Yes (Life-Threatening, Hospitalization)
  Sender: FDA-Public Use
  Company Number: None

PATIENT
  Sex: Female
  Weight: 93.8946 kg

DRUGS (1)
  1. LOESTRIN 24 FE [Suspect]
     Dosage: LOESTRIN 1MG 2X FE DAILY ORAL
     Route: 048
     Dates: start: 20110208, end: 20110607

REACTIONS (4)
  - PAIN [None]
  - NAUSEA [None]
  - INFLUENZA LIKE ILLNESS [None]
  - SUPERIOR SAGITTAL SINUS THROMBOSIS [None]
